FAERS Safety Report 13085024 (Version 1)
Quarter: 2017Q1

REPORT INFORMATION
  Report Type: Spontaneous
  Country: US (occurrence: US)
  Receive Date: 20170104
  Receipt Date: 20170104
  Transmission Date: 20170428
  Serious: No
  Sender: FDA-Public Use
  Company Number: US-GILEAD-2016-0248910

PATIENT
  Age: 35 Year
  Sex: Male
  Weight: 88 kg

DRUGS (9)
  1. AMBIEN [Concomitant]
     Active Substance: ZOLPIDEM TARTRATE
     Dosage: 10 DF, UNK
     Route: 048
     Dates: start: 20100111
  2. IBUPROFEN. [Concomitant]
     Active Substance: IBUPROFEN
     Dosage: 800 DF, PRN
     Route: 048
     Dates: start: 20131113
  3. PEPCID                             /00305201/ [Concomitant]
     Active Substance: ALUMINUM HYDROXIDE\MAGNESIUM CARBONATE
     Dosage: 20 DF, UNK
     Route: 048
     Dates: start: 20130815
  4. IMITREX [Concomitant]
     Active Substance: SUMATRIPTAN SUCCINATE
     Dosage: 50 DF, PRN
     Route: 048
     Dates: start: 20130815
  5. GENVOYA [Suspect]
     Active Substance: COBICISTAT\ELVITEGRAVIR\EMTRICITABINE\TENOFOVIR ALAFENAMIDE FUMARATE
     Indication: HIV INFECTION
     Dosage: UNK
     Route: 065
     Dates: start: 20160829, end: 20161205
  6. ADDERALL [Concomitant]
     Active Substance: AMPHETAMINE ASPARTATE\AMPHETAMINE SULFATE\DEXTROAMPHETAMINE SACCHARATE\DEXTROAMPHETAMINE SULFATE
     Dosage: 30 DF, UNK
     Route: 048
     Dates: start: 20100111
  7. TRIMIX                             /01591901/ [Concomitant]
     Dosage: UNK
     Route: 030
     Dates: start: 20120215
  8. CIALIS [Concomitant]
     Active Substance: TADALAFIL
     Dosage: 5 DF, PRN
     Route: 048
     Dates: start: 20150427
  9. CLARITIN [Concomitant]
     Active Substance: LORATADINE
     Dosage: 10 DF, UNK
     Route: 048
     Dates: start: 20140428

REACTIONS (1)
  - Drug eruption [Recovered/Resolved]

NARRATIVE: CASE EVENT DATE: 20161129
